FAERS Safety Report 5243444-0 (Version None)
Quarter: 2007Q1

REPORT INFORMATION
  Report Type: 
  Country: None (occurrence: None)
  Receive Date: 20070215
  Receipt Date: 20070129
  Transmission Date: 20070707
  Serious: Yes (Hospitalization)
  Sender: FDA-Public Use
  Company Number: 236254

PATIENT
  Age: 76 Year
  Weight: 74.6 kg

DRUGS (7)
  1. AVASTIN [Suspect]
     Indication: COLORECTAL CANCER METASTATIC
  2. CAPECITABINE (CAPECITABINE) [Suspect]
     Indication: COLORECTAL CANCER METASTATIC
     Dosage: 3600 MG, Q3W, ORAL
     Route: 048
     Dates: start: 20061130
  3. OXALIPLATIN [Suspect]
     Indication: COLORECTAL CANCER METASTATIC
     Dosage: 238 MG, Q3W, INTRAVENOUS
     Route: 042
     Dates: start: 20061130
  4. DECADRON [Concomitant]
  5. ZOFRAN [Concomitant]
  6. UNSPECIFIED MEDICATION (GENERIC COMPONENT (S) NOT KNOWN) [Concomitant]
  7. LIPITOR [Concomitant]

REACTIONS (1)
  - PYREXIA [None]
